FAERS Safety Report 9996073 (Version 2)
Quarter: 2014Q1

REPORT INFORMATION
  Report Type: Report from Study
  Country: TW (occurrence: TW)
  Receive Date: 20140311
  Receipt Date: 20140311
  Transmission Date: 20141002
  Serious: Yes (Death, Hospitalization)
  Sender: FDA-Public Use
  Company Number: TW-ACTELION-A-CH2014-95070

PATIENT
  Age: 33 Year
  Sex: Female
  Weight: 53.3 kg

DRUGS (7)
  1. MACITENTAN [Suspect]
     Indication: PULMONARY ARTERIAL HYPERTENSION
     Dosage: 10 MG, OD
     Route: 048
     Dates: start: 20101130, end: 20140122
  2. HYDROXYCHLOROQUINE [Concomitant]
     Dosage: UNK
     Dates: start: 20050105
  3. AZATHIOPRINE [Concomitant]
     Dosage: UNK
     Dates: start: 20050303
  4. SILDENAFIL CITRATE [Concomitant]
     Dosage: UNK
     Dates: start: 20101116
  5. DILTIAZEM [Concomitant]
     Dosage: UNK
     Dates: start: 20090114
  6. PREDNISOLONE [Concomitant]
     Dosage: UNK
     Dates: start: 20050105
  7. FUROSEMIDE [Concomitant]
     Dosage: UNK
     Dates: start: 20140114

REACTIONS (18)
  - Lupus nephritis [Fatal]
  - Right ventricular failure [Fatal]
  - Hepatic neoplasm [Not Recovered/Not Resolved]
  - Hepatic function abnormal [Unknown]
  - Alanine aminotransferase increased [Unknown]
  - Oedema peripheral [Fatal]
  - Dyspnoea exertional [Fatal]
  - Decreased appetite [Fatal]
  - Nausea [Fatal]
  - Vomiting [Fatal]
  - Abdominal pain [Unknown]
  - Diarrhoea [Unknown]
  - Mydriasis [Fatal]
  - Cardio-respiratory arrest [Fatal]
  - Pupillary reflex impaired [Fatal]
  - Aspartate aminotransferase increased [Unknown]
  - Blood alkaline phosphatase increased [Unknown]
  - Blood bilirubin increased [Unknown]
